FAERS Safety Report 15469423 (Version 1)
Quarter: 2018Q4

REPORT INFORMATION
  Report Type: Spontaneous
  Country: NL (occurrence: NL)
  Receive Date: 20181005
  Receipt Date: 20181005
  Transmission Date: 20190205
  Serious: Yes (Hospitalization, Other)
  Sender: FDA-Public Use
  Company Number: NL-MACLEODS PHARMACEUTICALS US LTD-MAC2018017140

PATIENT

DRUGS (2)
  1. QUETIAPINE 300 MG [Suspect]
     Active Substance: QUETIAPINE
     Indication: POST-TRAUMATIC STRESS DISORDER
     Dosage: UNK UNK, SINGLE, 20 TO 25 QUETIAPINE CONTROLLED-RELEASE TABLETS (A TOTAL OF 6,000-7,500 MG)
     Route: 048
  2. QUETIAPINE 300 MG [Suspect]
     Active Substance: QUETIAPINE
     Dosage: 300 MILLIGRAM, BID (CONTROLLED-RELEASE)
     Route: 048

REACTIONS (9)
  - Cardiac murmur [Unknown]
  - Intentional overdose [Unknown]
  - Sinus tachycardia [Unknown]
  - Poisoning [Unknown]
  - Miosis [Unknown]
  - Urinary retention [Unknown]
  - Abdominal pain [Unknown]
  - Electrocardiogram ST segment depression [Unknown]
  - Delirium [Recovering/Resolving]
